FAERS Safety Report 7229170-7 (Version None)
Quarter: 2011Q1

REPORT INFORMATION
  Report Type: 
  Country: None (occurrence: None)
  Receive Date: 20110117
  Receipt Date: 20110106
  Transmission Date: 20110831
  Serious: Yes (Hospitalization, Disabling, Other)
  Sender: FDA-Public Use
  Company Number: US-PFIZER INC-2010126123

PATIENT
  Sex: Female

DRUGS (4)
  1. TOPAMAX [Concomitant]
     Indication: MIGRAINE
  2. TOPAMAX [Concomitant]
     Indication: CONVULSION
     Dosage: UNK
     Dates: start: 20060101
  3. CHANTIX [Suspect]
     Indication: SMOKING CESSATION THERAPY
     Dosage: 1 MG, UNK
     Dates: start: 20080603, end: 20080701
  4. EXCEDRIN (MIGRAINE) [Concomitant]
     Indication: MIGRAINE
     Dosage: UNK
     Dates: start: 20000101

REACTIONS (14)
  - DEPRESSION [None]
  - HALLUCINATION, TACTILE [None]
  - ANXIETY [None]
  - HALLUCINATION, VISUAL [None]
  - INTENTIONAL OVERDOSE [None]
  - HALLUCINATION, AUDITORY [None]
  - PANIC ATTACK [None]
  - SUICIDE ATTEMPT [None]
  - DELUSION [None]
  - PSYCHOTIC DISORDER [None]
  - IRRITABILITY [None]
  - PARANOIA [None]
  - AGGRESSION [None]
  - INSOMNIA [None]
